FAERS Safety Report 13977086 (Version 1)
Quarter: 2017Q3

REPORT INFORMATION
  Report Type: Spontaneous
  Country: US (occurrence: US)
  Receive Date: 20170915
  Receipt Date: 20170915
  Transmission Date: 20171128
  Serious: Yes (Other)
  Sender: FDA-Public Use
  Company Number: US-ROCHE-686401

PATIENT
  Age: 55 Year
  Sex: Female

DRUGS (5)
  1. FARMORUBICIN [Suspect]
     Active Substance: EPIRUBICIN HYDROCHLORIDE
     Indication: BREAST CANCER
     Route: 042
     Dates: start: 20071218, end: 20080131
  2. HERCEPTIN [Suspect]
     Active Substance: TRASTUZUMAB
     Indication: BREAST CANCER
     Dosage: FORM: POWDER AND SOLVENT FOR SOLUTION FOR INFUSION
     Route: 042
     Dates: start: 20080222, end: 20080616
  3. TAXOTERE [Suspect]
     Active Substance: DOCETAXEL
     Indication: BREAST CANCER
     Dosage: FORM: SOLUTION FOR INFUSION.  FREQ: EVERY CYCLE
     Route: 042
     Dates: start: 20080222, end: 20080403
  4. ENDOXAN [Suspect]
     Active Substance: CYCLOPHOSPHAMIDE
     Indication: BREAST CANCER
     Dosage: FRQ: EVERY CYCLE; FORM: POWDER AND SOLVENT FOR SOLUTION
     Route: 042
     Dates: start: 20071218, end: 20080131
  5. FLUOROURACIL. [Suspect]
     Active Substance: FLUOROURACIL
     Indication: BREAST CANCER
     Dosage: DRUG NAME: FLUOROURACILE MYLAN: 50 MG/ML.?FREQ: EVERY CYCLE.  FORM: SOLUTION FOR INFUSION
     Route: 042
     Dates: start: 20071218, end: 20080131

REACTIONS (1)
  - Congestive cardiomyopathy [Recovered/Resolved with Sequelae]

NARRATIVE: CASE EVENT DATE: 20080725
